FAERS Safety Report 4414733-4 (Version None)
Quarter: 2004Q3

REPORT INFORMATION
  Report Type: 
  Country: None (occurrence: None)
  Receive Date: 20040804
  Receipt Date: 20030731
  Transmission Date: 20050211
  Serious: No
  Sender: FDA-Public Use
  Company Number: US-BRISTOL-MYERS SQUIBB COMPANY-12342283

PATIENT
  Age: 69 Year
  Sex: Female
  Weight: 82 kg

DRUGS (7)
  1. GLUCOVANCE [Suspect]
     Indication: DIABETES MELLITUS NON-INSULIN-DEPENDENT
     Dosage: DOSAGE FORM = 2.5/500
     Route: 048
     Dates: start: 20030728
  2. ATROVENT [Concomitant]
  3. ALBUTEROL [Concomitant]
  4. SEREVENT [Concomitant]
  5. ALLEGRA [Concomitant]
  6. NORVASC [Concomitant]
  7. ACIPHEX [Concomitant]

REACTIONS (1)
  - DIARRHOEA [None]
